FAERS Safety Report 9790570 (Version 1)
Quarter: 2013Q4

REPORT INFORMATION
  Report Type: Spontaneous
  Country: PT (occurrence: ES)
  Receive Date: 20131231
  Receipt Date: 20131231
  Transmission Date: 20140711
  Serious: Yes (Other)
  Sender: FDA-Public Use
  Company Number: 2013SP003693

PATIENT
  Sex: Male

DRUGS (1)
  1. ZEBINIX (ESLICARBAZEPINE ACETATE) [Suspect]
     Indication: TRIGEMINAL NEURALGIA
     Route: 048
     Dates: end: 201312

REACTIONS (1)
  - Atrioventricular block complete [Recovered/Resolved]
